FAERS Safety Report 12977918 (Version 1)
Quarter: 2016Q4

REPORT INFORMATION
  Report Type: Spontaneous
  Country: US (occurrence: US)
  Receive Date: 20161128
  Receipt Date: 20161128
  Transmission Date: 20170207
  Serious: No
  Sender: FDA-Public Use
  Company Number: US-BAYER-2016-224722

PATIENT
  Age: 79 Year
  Sex: Male
  Weight: 54.42 kg

DRUGS (1)
  1. MIRALAX [Suspect]
     Active Substance: POLYETHYLENE GLYCOL 3350
     Indication: GASTROINTESTINAL DISORDER
     Dosage: 1 DF (OZ), ONCE
     Route: 048
     Dates: start: 20161122, end: 20161122

REACTIONS (1)
  - Product use issue [None]

NARRATIVE: CASE EVENT DATE: 20161122
